FAERS Safety Report 7367571-7 (Version None)
Quarter: 2011Q1

REPORT INFORMATION
  Report Type: 
  Country: None (occurrence: None)
  Receive Date: 20110322
  Receipt Date: 20110309
  Transmission Date: 20110831
  Serious: Yes (Hospitalization)
  Sender: FDA-Public Use
  Company Number: CA-JNJFOC-20110305186

PATIENT
  Age: 59 Year
  Sex: Female
  Weight: 70.8 kg

DRUGS (4)
  1. REMICADE [Suspect]
     Indication: RHEUMATOID ARTHRITIS
     Route: 042
  2. LYRICA [Concomitant]
     Indication: PAIN
     Dosage: DIE
     Route: 048
  3. SEROQUEL [Concomitant]
     Dosage: DIE
     Route: 048
  4. VENTOLIN [Concomitant]
     Indication: ASTHMA
     Dosage: 1 - 8 X DIE
     Route: 055

REACTIONS (3)
  - SINUSITIS [None]
  - BRONCHITIS [None]
  - ASTHMA [None]
